FAERS Safety Report 7528390-1 (Version None)
Quarter: 2011Q2

REPORT INFORMATION
  Report Type: 
  Country: None (occurrence: None)
  Receive Date: 20110607
  Receipt Date: 20100816
  Transmission Date: 20111010
  Serious: Yes (Other)
  Sender: FDA-Public Use
  Company Number: US-ASTRAZENECA-2010SE38557

PATIENT
  Sex: Male

DRUGS (1)
  1. PRILOSEC OTC [Suspect]
     Route: 048
     Dates: start: 20100731, end: 20100803

REACTIONS (4)
  - HYPERSENSITIVITY [None]
  - PALPITATIONS [None]
  - DIZZINESS [None]
  - PARAESTHESIA [None]
